FAERS Safety Report 5399504-7 (Version None)
Quarter: 2007Q3

REPORT INFORMATION
  Report Type: 
  Country: None (occurrence: None)
  Receive Date: 20070727
  Receipt Date: 20070716
  Transmission Date: 20080115
  Serious: Yes (Disabling, Other)
  Sender: FDA-Public Use
  Company Number: US-PFIZER INC-2007040890

PATIENT
  Sex: Female
  Weight: 65.8 kg

DRUGS (6)
  1. CHANTIX [Suspect]
     Indication: SMOKING CESSATION THERAPY
     Dates: start: 20070516, end: 20070518
  2. FLUOXETINE [Concomitant]
  3. HYDROCHLOROTHIAZIDE [Concomitant]
  4. ASPIRIN [Concomitant]
  5. PREMPRO [Concomitant]
  6. IBUPROFEN [Concomitant]

REACTIONS (1)
  - IMPAIRED WORK ABILITY [None]
